FAERS Safety Report 4499640-3 (Version None)
Quarter: 2004Q4

REPORT INFORMATION
  Report Type: 
  Country: None (occurrence: None)
  Receive Date: 20041108
  Receipt Date: 20041028
  Transmission Date: 20050328
  Serious: Yes (Life-Threatening, Hospitalization)
  Sender: FDA-Public Use
  Company Number: 2004081020

PATIENT
  Age: 49 Year
  Sex: Male

DRUGS (9)
  1. LIPITOR [Suspect]
     Indication: ILL-DEFINED DISORDER
     Dosage: 10 MG (10 MG, 1 IN 1 D), ORAL
     Route: 048
     Dates: start: 20040927, end: 20041013
  2. TICLOPIDINE HYDROCHLORIDE (TICLOPIDINE HYDROCLORIDE) [Suspect]
     Indication: ILL-DEFINED DISORDER
     Dosage: 200 MG, ORAL
     Route: 048
     Dates: start: 20040807, end: 20041014
  3. RANITIDINE HYDROCHLORIDE [Suspect]
     Indication: ILL-DEFINED DISORDER
     Dosage: 300 MG, ORAL
     Route: 048
     Dates: start: 20040821, end: 20041014
  4. ISOSORBIDE MONONITRATE [Concomitant]
  5. INSULIN ASPART [Concomitant]
  6. ASPIRIN [Concomitant]
  7. MAGNESIUM OXIDE (MAGNESIUM OXIDE) [Concomitant]
  8. ALL OTHER THERAPEUTIC PRODUCTS (ALL OTHER THERAPEUTIC PRODUCTS) [Concomitant]
  9. SENNA LEAF (SENNA LEAF) [Concomitant]

REACTIONS (11)
  - BLOOD ALKALINE PHOSPHATASE INCREASED [None]
  - BLOOD GLUCOSE INCREASED [None]
  - CORONARY ARTERY SURGERY [None]
  - DIABETES MELLITUS [None]
  - HAEMATOCRIT DECREASED [None]
  - HAEMATOMA [None]
  - IDIOPATHIC THROMBOCYTOPENIC PURPURA [None]
  - MONOCYTE PERCENTAGE DECREASED [None]
  - PLATELET COUNT DECREASED [None]
  - RED BLOOD CELL COUNT DECREASED [None]
  - WHITE BLOOD CELL COUNT INCREASED [None]
